FAERS Safety Report 16164598 (Version 1)
Quarter: 2019Q2

REPORT INFORMATION
  Report Type: Spontaneous
  Country: PL (occurrence: PL)
  Receive Date: 20190405
  Receipt Date: 20190405
  Transmission Date: 20190711
  Serious: Yes (Other)
  Sender: FDA-Public Use
  Company Number: PL-ANIPHARMA-2019-PL-000013

PATIENT
  Age: 50 Year
  Sex: 0

DRUGS (6)
  1. TAMOXIFEN [Suspect]
     Active Substance: TAMOXIFEN
     Dosage: UNK
     Route: 048
     Dates: end: 201709
  2. FLUOROURACIL. [Suspect]
     Active Substance: FLUOROURACIL
     Dosage: UNK
     Route: 065
     Dates: end: 201709
  3. DOXORUBICIN [Suspect]
     Active Substance: DOXORUBICIN
     Dosage: UNK
     Route: 065
     Dates: end: 201709
  4. ANASTROZOLE. [Suspect]
     Active Substance: ANASTROZOLE
     Indication: BREAST CANCER METASTATIC
     Dosage: UNK
     Route: 048
     Dates: end: 201709
  5. ZOLADEX [Suspect]
     Active Substance: GOSERELIN ACETATE
     Dosage: UNK
     Route: 058
     Dates: end: 201709
  6. CYCLOPHOSPHAMIDE. [Suspect]
     Active Substance: CYCLOPHOSPHAMIDE
     Dosage: UNK
     Route: 065
     Dates: end: 201709

REACTIONS (1)
  - Metastases to bone [Unknown]

NARRATIVE: CASE EVENT DATE: 201902
